FAERS Safety Report 5405654-9 (Version None)
Quarter: 2007Q3

REPORT INFORMATION
  Report Type: 
  Country: None (occurrence: None)
  Receive Date: 20070806
  Receipt Date: 20070730
  Transmission Date: 20080115
  Serious: Yes (Other)
  Sender: FDA-Public Use
  Company Number: PHBS2007BR12645

PATIENT
  Age: 11 Year
  Sex: Female

DRUGS (1)
  1. RITALIN [Suspect]
     Dosage: UNK, BID
     Route: 048

REACTIONS (5)
  - ABDOMINAL PAIN UPPER [None]
  - ANXIETY [None]
  - DIZZINESS [None]
  - TACHYCARDIA [None]
  - TREMOR [None]
